FAERS Safety Report 11415531 (Version 1)
Quarter: 2015Q3

REPORT INFORMATION
  Report Type: Spontaneous
  Country: DE (occurrence: DE)
  Receive Date: 20150825
  Receipt Date: 20150825
  Transmission Date: 20151125
  Serious: Yes (Hospitalization, Other)
  Sender: FDA-Public Use
  Company Number: DE-SUN PHARMACEUTICAL INDUSTRIES LTD-2015RR-101896

PATIENT

DRUGS (10)
  1. MOXONIDINE [Suspect]
     Active Substance: MOXONIDINE
     Indication: HYPERTENSION
     Route: 048
  2. HYDROCHLOROTHIAZIDE. [Suspect]
     Active Substance: HYDROCHLOROTHIAZIDE
     Indication: HYPERTENSION
     Route: 048
  3. RAMIPRIL. [Suspect]
     Active Substance: RAMIPRIL
     Indication: HYPERTENSION
     Route: 048
  4. MINOXIDIL. [Suspect]
     Active Substance: MINOXIDIL
     Indication: HYPERTENSION
     Route: 048
  5. CARVEDILOL. [Suspect]
     Active Substance: CARVEDILOL
     Indication: HYPERTENSION
     Route: 048
  6. DOXAZOSIN [Suspect]
     Active Substance: DOXAZOSIN\DOXAZOSIN MESYLATE
     Indication: HYPERTENSION
     Route: 048
  7. AMLODIPINE [Suspect]
     Active Substance: AMLODIPINE BESYLATE
     Indication: HYPERTENSION
     Route: 048
  8. VALSARTAN. [Suspect]
     Active Substance: VALSARTAN
     Indication: HYPERTENSION
     Route: 048
  9. SPIRONOLACTONE. [Suspect]
     Active Substance: SPIRONOLACTONE
     Indication: HYPERTENSION
  10. TORASEMIDE [Suspect]
     Active Substance: TORSEMIDE
     Indication: HYPERTENSION
     Route: 048

REACTIONS (2)
  - Acute kidney injury [Recovered/Resolved]
  - Hypotension [Recovered/Resolved]
